FAERS Safety Report 19999167 (Version 9)
Quarter: 2024Q3

REPORT INFORMATION
  Report Type: Spontaneous
  Country: US (occurrence: US)
  Receive Date: 20211026
  Receipt Date: 20240807
  Transmission Date: 20241016
  Serious: Yes (Other)
  Sender: PFIZER
  Company Number: US-PFIZER INC-202101376554

PATIENT
  Age: 71 Year
  Sex: Female
  Weight: 48.98 kg

DRUGS (3)
  1. PREMARIN [Suspect]
     Active Substance: ESTROGENS, CONJUGATED
     Indication: Atrophic vulvovaginitis
     Dosage: 2 G, WEEKLY
  2. PREMARIN [Suspect]
     Active Substance: ESTROGENS, CONJUGATED
     Indication: Vaginal haemorrhage
     Dosage: 3 TIMES A WEEK
     Route: 067
  3. PREMARIN [Suspect]
     Active Substance: ESTROGENS, CONJUGATED
     Dosage: 2 (NO UNIT PROVIDED), 1X/DAY
     Dates: start: 2018

REACTIONS (3)
  - Cataract [Unknown]
  - Off label use [Unknown]
  - Intentional product misuse [Unknown]
